FAERS Safety Report 8402016-7 (Version None)
Quarter: 2012Q1

REPORT INFORMATION
  Report Type: 
  Country: None (occurrence: None)
  Receive Date: 20120329
  Receipt Date: 20120514
  Transmission Date: 20120608
  Serious: Yes (Other)
  Sender: FDA-Public Use
  Company Number: ENTC2012-0008

PATIENT
  Age: 85 Year
  Sex: Male

DRUGS (1)
  1. STALEVO 100 [Suspect]
     Indication: PARKINSON'S DISEASE
     Dosage: 3 TABLETS (100/25/200 MG) DAILY

REACTIONS (6)
  - COGNITIVE DISORDER [None]
  - HEADACHE [None]
  - GAIT DISTURBANCE [None]
  - FATIGUE [None]
  - DIZZINESS [None]
  - FALL [None]
